FAERS Safety Report 10572271 (Version 2)
Quarter: 2014Q4

REPORT INFORMATION
  Report Type: Spontaneous
  Country: JP (occurrence: JP)
  Receive Date: 20141108
  Receipt Date: 20141124
  Transmission Date: 20150529
  Serious: Yes (Hospitalization)
  Sender: FDA-Public Use
  Company Number: PHHY2014JP144954

PATIENT
  Age: 28 Year
  Sex: Female

DRUGS (2)
  1. SLOW K [Suspect]
     Active Substance: POTASSIUM CHLORIDE
     Indication: GITELMAN^S SYNDROME
     Dosage: 4200 MG (7 TABLETS), QD
     Route: 048
  2. SLOW K [Suspect]
     Active Substance: POTASSIUM CHLORIDE
     Dosage: 4800 MG (8 TABLETS IN 4 DIVIDED DOSES), QD
     Route: 048

REACTIONS (3)
  - Seizure [Recovered/Resolved]
  - Blood potassium decreased [Unknown]
  - Overdose [Unknown]

NARRATIVE: CASE EVENT DATE: 20141024
